FAERS Safety Report 14760565 (Version 4)
Quarter: 2018Q2

REPORT INFORMATION
  Report Type: Report from Study
  Country: None (occurrence: CA)
  Receive Date: 20180414
  Receipt Date: 20180611
  Transmission Date: 20180711
  Serious: Yes (Other)
  Sender: FDA-Public Use
  Company Number: CA-ABBVIE-18K-028-2319843-00

PATIENT
  Age: 29 Year
  Sex: Female
  Weight: 62.5 kg

DRUGS (1)
  1. HUMIRA [Suspect]
     Active Substance: ADALIMUMAB
     Indication: CROHN^S DISEASE
     Route: 058
     Dates: start: 20171207

REACTIONS (14)
  - Abortion spontaneous [Unknown]
  - Exposure during pregnancy [Unknown]
  - Aphthous ulcer [Not Recovered/Not Resolved]
  - Ovarian cyst [Not Recovered/Not Resolved]
  - Subchorionic haematoma [Recovered/Resolved]
  - Haemorrhage in pregnancy [Unknown]
  - Therapeutic response unexpected [Unknown]
  - Vaginal haemorrhage [Unknown]
  - Abdominal pain [Unknown]
  - Uterine perforation [Unknown]
  - Abdominal tenderness [Unknown]
  - Anaemia [Not Recovered/Not Resolved]
  - Placental insufficiency [Recovered/Resolved]
  - Pre-existing condition improved [Unknown]

NARRATIVE: CASE EVENT DATE: 2018
